FAERS Safety Report 9432684 (Version 1)
Quarter: 2013Q3

REPORT INFORMATION
  Report Type: Spontaneous
  Country: US (occurrence: US)
  Receive Date: 20130731
  Receipt Date: 20130731
  Transmission Date: 20140515
  Serious: Yes (Other)
  Sender: FDA-Public Use
  Company Number: CHPA2013US011686

PATIENT
  Age: 72 Year
  Sex: Female

DRUGS (3)
  1. PERDIEM FIBER [Suspect]
     Indication: PROPHYLAXIS
     Dosage: UNK, UNK
     Dates: end: 1995
  2. PERDIEM OVERNIGHT RELIEF PILLS [Suspect]
     Indication: PROPHYLAXIS
     Dosage: 6 DF, QHS
     Route: 048
     Dates: start: 1995
  3. METAMUCIL [Suspect]
     Dosage: UNK
     Dates: start: 1995

REACTIONS (5)
  - Abdominal adhesions [Recovered/Resolved]
  - Intestinal obstruction [Recovered/Resolved]
  - Incorrect drug administration duration [Unknown]
  - Prescribed overdose [Unknown]
  - Off label use [Unknown]
